FAERS Safety Report 21228692 (Version 1)
Quarter: 2022Q3

REPORT INFORMATION
  Report Type: Spontaneous
  Country: US (occurrence: US)
  Receive Date: 20220818
  Receipt Date: 20220818
  Transmission Date: 20221027
  Serious: No
  Sender: FDA-Public Use
  Company Number: US-PFIZER INC-PV202200044056

PATIENT
  Age: 57 Year
  Sex: Male

DRUGS (2)
  1. RAPAMUNE [Suspect]
     Active Substance: SIROLIMUS
     Indication: Renal transplant
     Dosage: 2 MG, DAILY (TAKE 2 MG BY MOUTH DAILY FOR 3 DAYS)
     Route: 048
  2. RAPAMUNE [Suspect]
     Active Substance: SIROLIMUS
     Dosage: 1 MG, DAILY
     Route: 048

REACTIONS (1)
  - Laboratory test abnormal [Unknown]
